FAERS Safety Report 6720036-5 (Version None)
Quarter: 2010Q2

REPORT INFORMATION
  Report Type: 
  Country: None (occurrence: None)
  Receive Date: 20100511
  Receipt Date: 20100507
  Transmission Date: 20101027
  Serious: Yes (Other)
  Sender: FDA-Public Use
  Company Number: RO-BAYER-201022852GPV

PATIENT
  Age: 55 Year

DRUGS (2)
  1. FLUDARA [Suspect]
     Indication: CHRONIC LYMPHOCYTIC LEUKAEMIA
     Dates: start: 20031201
  2. LEUKERAN [Suspect]
     Indication: CHRONIC LYMPHOCYTIC LEUKAEMIA

REACTIONS (4)
  - ANAEMIA [None]
  - CYTOLYTIC HEPATITIS [None]
  - HERPES VIRUS INFECTION [None]
  - NON-HODGKIN'S LYMPHOMA [None]
